FAERS Safety Report 9416131 (Version 1)
Quarter: 2013Q3

REPORT INFORMATION
  Report Type: Spontaneous
  Country: US (occurrence: None)
  Receive Date: 20130717
  Receipt Date: 20130717
  Transmission Date: 20140515
  Serious: Yes (Disabling)
  Sender: FDA-Public Use
  Company Number: 2013P1010686

PATIENT
  Age: 61 Year
  Sex: Female
  Weight: 89.36 kg

DRUGS (5)
  1. CETIRIZINE HYDROCHLORIDE [Suspect]
     Indication: URTICARIA
     Route: 048
     Dates: start: 20130411
  2. FAMOTIDINE [Suspect]
     Indication: URTICARIA
     Route: 048
     Dates: start: 20130411
  3. HYDROXYZINE HCL [Suspect]
     Indication: PRURITUS
     Dosage: 25-50 MG
     Dates: start: 20130411
  4. VENLAFAXINE ER [Suspect]
     Dates: start: 20130204, end: 20130605
  5. MELATONIN [Concomitant]

REACTIONS (1)
  - Abasia [None]
